FAERS Safety Report 6501732-1 (Version None)
Quarter: 2009Q4

REPORT INFORMATION
  Report Type: 
  Country: None (occurrence: None)
  Receive Date: 20091207
  Receipt Date: 20091124
  Transmission Date: 20100525
  Serious: Yes (Death, Hospitalization)
  Sender: FDA-Public Use
  Company Number: WAES 0911USA04864

PATIENT
  Age: 75 Year
  Sex: Male
  Weight: 101.6057 kg

DRUGS (8)
  1. DECADRON TABLETS 16 MG [Suspect]
     Dosage: 4 MG/ QID/ PO
     Route: 048
     Dates: start: 20090827, end: 20091025
  2. BLINDED THERAPY UNK [Suspect]
     Dosage: PO
     Route: 048
     Dates: start: 20090831, end: 20091024
  3. DIAGNOSTIC RADIOPHARMACEUTIAL (UNSPECIFIED) UNK [Suspect]
     Dosage: 5 DAYS ON/ 16 DAYS OFF
     Dates: start: 20090831, end: 20091025
  4. LASIX [Suspect]
     Dosage: 20 MG/ DAILY
     Dates: start: 20080901, end: 20091025
  5. CARDURA [Concomitant]
  6. KEPPRA [Concomitant]
  7. METOPROLOL [Concomitant]
  8. SPIRONOLACTONE [Concomitant]

REACTIONS (21)
  - BLOOD ALBUMIN DECREASED [None]
  - BLOOD CREATINE INCREASED [None]
  - BLOOD UREA INCREASED [None]
  - BLOOD URINE PRESENT [None]
  - DEEP VEIN THROMBOSIS [None]
  - DEHYDRATION [None]
  - ECG SIGNS OF MYOCARDIAL ISCHAEMIA [None]
  - ELECTROCARDIOGRAM ST-T CHANGE [None]
  - FALL [None]
  - FIBRIN D DIMER INCREASED [None]
  - HEART RATE INCREASED [None]
  - HYPERGLYCAEMIA [None]
  - HYPOVOLAEMIC SHOCK [None]
  - LIVEDO RETICULARIS [None]
  - RED BLOOD CELLS URINE POSITIVE [None]
  - RESPIRATORY DISTRESS [None]
  - RESPIRATORY RATE INCREASED [None]
  - SEPSIS [None]
  - SKIN DISCOLOURATION [None]
  - URINE LEUKOCYTE ESTERASE POSITIVE [None]
  - WHITE BLOOD CELLS URINE POSITIVE [None]
